FAERS Safety Report 8066807-7 (Version None)
Quarter: 2012Q1

REPORT INFORMATION
  Report Type: 
  Country: None (occurrence: None)
  Receive Date: 20120124
  Receipt Date: 20120116
  Transmission Date: 20120608
  Serious: Yes (Other)
  Sender: FDA-Public Use
  Company Number: PHHY2012AR003881

PATIENT
  Sex: Male

DRUGS (1)
  1. EXELON [Suspect]
     Indication: MEMORY IMPAIRMENT
     Dosage: UNK
     Route: 062

REACTIONS (2)
  - NEPHROLITHIASIS [None]
  - PROSTATOMEGALY [None]
